FAERS Safety Report 8576392-9 (Version None)
Quarter: 2012Q3

REPORT INFORMATION
  Report Type: 
  Country: None (occurrence: None)
  Receive Date: 20120807
  Receipt Date: 20120801
  Transmission Date: 20120928
  Serious: Yes (Other)
  Sender: FDA-Public Use
  Company Number: US-PERRIGO-12US005576

PATIENT
  Sex: Male
  Weight: 7.483 kg

DRUGS (2)
  1. AMOXICILLIN [Concomitant]
     Indication: EAR INFECTION
     Dosage: UNKNOWN, UNKNOWN
     Route: 048
     Dates: start: 20120603, end: 20120613
  2. ACETAMINOPHEN [Suspect]
     Indication: TEETHING
     Dosage: {40 MG PRN
     Route: 048
     Dates: start: 20120601, end: 20120615

REACTIONS (4)
  - DRUG ADMINISTERED TO PATIENT OF INAPPROPRIATE AGE [None]
  - BLOOD BILIRUBIN INCREASED [None]
  - JAUNDICE [None]
  - GASTRIC DISORDER [None]
